FAERS Safety Report 10226623 (Version 4)
Quarter: 2014Q2

REPORT INFORMATION
  Report Type: Report from Study
  Country: AR (occurrence: AR)
  Receive Date: 20140609
  Receipt Date: 20140618
  Transmission Date: 20141212
  Serious: Yes (Other)
  Sender: FDA-Public Use
  Company Number: PHHY2013AR108551

PATIENT
  Sex: Female

DRUGS (2)
  1. ONBREZ [Suspect]
     Indication: EMPHYSEMA
     Dosage: 150 UG, QD
     Route: 055
     Dates: start: 2013
  2. ONBREZ [Suspect]
     Indication: OFF LABEL USE
     Dosage: 150 UG, BID (SOMETIMES RECEIVED 3 TIMES A DAY)
     Route: 055

REACTIONS (8)
  - Bronchospasm [Not Recovered/Not Resolved]
  - Dyspnoea [Not Recovered/Not Resolved]
  - Heart rate increased [Not Recovered/Not Resolved]
  - Agitation [Not Recovered/Not Resolved]
  - General physical health deterioration [Not Recovered/Not Resolved]
  - Fatigue [Recovering/Resolving]
  - Anxiety [Unknown]
  - Gait disturbance [Not Recovered/Not Resolved]
